FAERS Safety Report 8898777 (Version 1)
Quarter: 2012Q4

REPORT INFORMATION
  Report Type: 
  Country: US (occurrence: US)
  Receive Date: 20121108
  Receipt Date: 20121108
  Transmission Date: 20130627
  Serious: No
  Sender: FDA-Public Use
  Company Number: US-AMGEN-USASP2012024226

PATIENT
  Sex: Female
  Weight: 94 kg

DRUGS (8)
  1. ENBREL [Suspect]
     Indication: PRODUCT USED FOR UNKNOWN INDICATION
     Dosage: 25 mg, 2 times/wk
     Route: 058
  2. CELEBREX [Concomitant]
     Dosage: 100 mg, UNK
  3. LORTAB                             /00607101/ [Concomitant]
     Dosage: UNK
  4. MULTIVITAMIN                       /00097801/ [Concomitant]
  5. CALCIUM 600 [Concomitant]
  6. VITAMIN B12                        /00056201/ [Concomitant]
  7. BENEFIBER                          /00677201/ [Concomitant]
  8. VITAMIN D /00107901/ [Concomitant]
     Dosage: 1000 IU, UNK

REACTIONS (2)
  - Pain [Unknown]
  - Headache [Unknown]
